FAERS Safety Report 7375944-1 (Version None)
Quarter: 2011Q1

REPORT INFORMATION
  Report Type: 
  Country: None (occurrence: None)
  Receive Date: 20110325
  Receipt Date: 20110228
  Transmission Date: 20110831
  Serious: No
  Sender: FDA-Public Use
  Company Number: US-B.I. PHARMACEUTICALS,INC./RIDGEFIELD-2011-BP-05654BP

PATIENT
  Sex: Male

DRUGS (8)
  1. PLAVIX [Concomitant]
     Indication: BLOOD CHOLESTEROL INCREASED
     Dosage: 75 MG
     Route: 048
  2. GLYBURIDE [Concomitant]
     Indication: DIABETES MELLITUS
     Route: 048
  3. BENICAR [Concomitant]
     Indication: HYPERTENSION
     Route: 048
  4. LIPITOR [Concomitant]
     Indication: BLOOD CHOLESTEROL INCREASED
     Route: 048
  5. PRADAXA [Suspect]
     Indication: ATRIAL FIBRILLATION
     Dosage: 300 MG
     Route: 048
     Dates: start: 20110117
  6. JANUVIA [Concomitant]
     Indication: DIABETES MELLITUS
     Route: 048
  7. TRILIPIX [Concomitant]
     Indication: BLOOD TRIGLYCERIDES INCREASED
     Dosage: 270 MG
     Route: 048
  8. METOPROLOL [Concomitant]
     Indication: BLOOD CHOLESTEROL INCREASED
     Route: 048

REACTIONS (2)
  - CONSTIPATION [None]
  - RECTAL HAEMORRHAGE [None]
